FAERS Safety Report 6996316-5 (Version None)
Quarter: 2010Q3

REPORT INFORMATION
  Report Type: 
  Country: None (occurrence: None)
  Receive Date: 20100918
  Receipt Date: 20090128
  Transmission Date: 20110219
  Serious: No
  Sender: FDA-Public Use
  Company Number: US-WYE-H07942809

PATIENT
  Sex: Female
  Weight: 59.02 kg

DRUGS (3)
  1. EFFEXOR XR [Suspect]
     Indication: DEPRESSION
     Dosage: UNKNOWN
     Route: 048
     Dates: start: 19990101
  2. EFFEXOR XR [Suspect]
     Indication: ANXIETY
  3. TRAZODONE HCL [Concomitant]
     Indication: INSOMNIA
     Dosage: UNKNOWN

REACTIONS (1)
  - DRUG SCREEN FALSE POSITIVE [None]
